FAERS Safety Report 20941555 (Version 1)
Quarter: 2022Q2

REPORT INFORMATION
  Report Type: Spontaneous
  Country: US (occurrence: US)
  Receive Date: 20220610
  Receipt Date: 20220610
  Transmission Date: 20220721
  Serious: No
  Sender: FDA-Public Use
  Company Number: US-STRIDES ARCOLAB LIMITED-2022SP002270

PATIENT
  Age: 74 Year
  Sex: Male

DRUGS (13)
  1. CLONAZEPAM [Suspect]
     Active Substance: CLONAZEPAM
     Indication: Catatonia
     Dosage: 2 MILLIGRAM, BID
     Route: 065
  2. AMANTADINE [Suspect]
     Active Substance: AMANTADINE
     Indication: Catatonia
     Dosage: UNK
     Route: 065
  3. AMANTADINE [Suspect]
     Active Substance: AMANTADINE
     Dosage: UNK; INCREASE DOSE
     Route: 065
  4. ZOLPIDEM [Suspect]
     Active Substance: ZOLPIDEM TARTRATE
     Indication: Catatonia
     Dosage: UNK
     Route: 065
  5. VENLAFAXINE [Suspect]
     Active Substance: VENLAFAXINE HYDROCHLORIDE
     Indication: Catatonia
     Dosage: UNK
     Route: 065
  6. VENLAFAXINE [Suspect]
     Active Substance: VENLAFAXINE HYDROCHLORIDE
     Dosage: 225 MILLIGRAM, EXTENDED-RELEASE 225MG EVERY MORNING
     Route: 065
  7. QUETIAPINE [Suspect]
     Active Substance: QUETIAPINE
     Indication: Catatonia
     Dosage: 50 MILLIGRAM, 1 HOUR
     Route: 065
  8. LITHIUM CARBONATE [Suspect]
     Active Substance: LITHIUM CARBONATE
     Indication: Catatonia
     Dosage: UNK, MAXIMAL LEVEL 0.68 MEQ/L
     Route: 065
  9. LORAZEPAM [Suspect]
     Active Substance: LORAZEPAM
     Indication: Catatonia
     Dosage: UNK
     Route: 065
  10. LORAZEPAM [Suspect]
     Active Substance: LORAZEPAM
     Dosage: 1.5 MILLIGRAM, 6 HOURS
     Route: 042
  11. LORAZEPAM [Suspect]
     Active Substance: LORAZEPAM
     Dosage: 3 MILLIGRAM, 6 HOURS
     Route: 042
  12. LORAZEPAM [Suspect]
     Active Substance: LORAZEPAM
     Dosage: 3 MILLIGRAM, PER DAY
     Route: 042
  13. LORAZEPAM [Suspect]
     Active Substance: LORAZEPAM
     Dosage: 16 MILLIGRAM, PER DAY
     Route: 042

REACTIONS (3)
  - Ataxia [Unknown]
  - Drug ineffective [Unknown]
  - Off label use [Unknown]
